FAERS Safety Report 8474675-4 (Version None)
Quarter: 2012Q2

REPORT INFORMATION
  Report Type: 
  Country: None (occurrence: None)
  Receive Date: 20120628
  Receipt Date: 20120618
  Transmission Date: 20120825
  Serious: Yes (Other)
  Sender: FDA-Public Use
  Company Number: US-CELGENEUS-163-21880-12022265

PATIENT
  Sex: Female
  Weight: 60.8 kg

DRUGS (3)
  1. REVLIMID [Suspect]
     Dosage: 5 MILLIGRAM
     Route: 048
     Dates: start: 20120201
  2. REVLIMID [Suspect]
     Dosage: 15 MILLIGRAM
     Route: 048
     Dates: start: 20101005, end: 20110526
  3. REVLIMID [Suspect]
     Dosage: 10 MILLIGRAM
     Route: 048
     Dates: start: 20120111

REACTIONS (10)
  - RENAL IMPAIRMENT [None]
  - BLOOD GLUCOSE ABNORMAL [None]
  - DYSPEPSIA [None]
  - WHITE BLOOD CELL COUNT DECREASED [None]
  - TREMOR [None]
  - DEHYDRATION [None]
  - DRUG DOSE OMISSION [None]
  - BLOOD CALCIUM DECREASED [None]
  - CARDIAC FLUTTER [None]
  - RED BLOOD CELL COUNT DECREASED [None]
